FAERS Safety Report 4843672-X (Version None)
Quarter: 2005Q4

REPORT INFORMATION
  Report Type: 
  Country: None (occurrence: None)
  Receive Date: 20051202
  Receipt Date: 20050805
  Transmission Date: 20060501
  Serious: Yes (Disabling)
  Sender: FDA-Public Use
  Company Number: 2005UW11686

PATIENT
  Age: 57 Year
  Sex: Female

DRUGS (8)
  1. CRESTOR [Suspect]
     Route: 048
     Dates: end: 20050705
  2. APO-HYDROXYQUINE [Concomitant]
     Dates: start: 20050501
  3. NEXIUM [Concomitant]
     Route: 048
     Dates: start: 20050501
  4. NOVO-DIFENAC SR [Concomitant]
     Dates: start: 20050501
  5. SYNTHROID [Concomitant]
     Dates: start: 20021201
  6. CELEXA [Concomitant]
     Indication: KNEE ARTHROPLASTY
  7. LIPITOR [Concomitant]
  8. QUININE [Concomitant]
     Dates: start: 20050501

REACTIONS (3)
  - ARTHRALGIA [None]
  - ARTHRITIS [None]
  - SYNOVITIS [None]
